FAERS Safety Report 5905451-1 (Version None)
Quarter: 2008Q4

REPORT INFORMATION
  Report Type: 
  Country: None (occurrence: None)
  Receive Date: 20081001
  Receipt Date: 20081001
  Transmission Date: 20090506
  Serious: Yes (Other)
  Sender: FDA-Public Use
  Company Number: None

PATIENT
  Age: 79 Year
  Sex: Female
  Weight: 107.0489 kg

DRUGS (1)
  1. AGGRENOX [Suspect]
     Dosage: 2 X DAILY DAILY
     Dates: start: 20080201

REACTIONS (2)
  - PETECHIAE [None]
  - VENOUS HAEMORRHAGE [None]
